FAERS Safety Report 17413941 (Version 1)
Quarter: 2020Q1

REPORT INFORMATION
  Report Type: Spontaneous
  Country: IT (occurrence: IT)
  Receive Date: 20200213
  Receipt Date: 20200213
  Transmission Date: 20200409
  Serious: Yes (Other)
  Sender: FDA-Public Use
  Company Number: IT-STALLERGENES SAS-2080276

PATIENT
  Age: 26 Year
  Sex: Female
  Weight: 56 kg

DRUGS (1)
  1. ORALAIR [Suspect]
     Active Substance: ANTHOXANTHUM ODORATUM POLLEN\DACTYLIS GLOMERATA POLLEN\LOLIUM PERENNE POLLEN\PHLEUM PRATENSE POLLEN\POA PRATENSIS POLLEN
     Indication: RHINITIS ALLERGIC
     Route: 060
     Dates: start: 20191201

REACTIONS (3)
  - Dermatitis exfoliative [Recovering/Resolving]
  - Dry skin [Recovering/Resolving]
  - Erythema [Recovering/Resolving]

NARRATIVE: CASE EVENT DATE: 20191217
